FAERS Safety Report 8612000-6 (Version None)
Quarter: 2012Q3

REPORT INFORMATION
  Report Type: 
  Country: None (occurrence: None)
  Receive Date: 20120822
  Receipt Date: 20120817
  Transmission Date: 20120928
  Serious: Yes (Hospitalization)
  Sender: FDA-Public Use
  Company Number: US-GLAXOSMITHKLINE-A0990077A

PATIENT
  Age: 72 Year
  Sex: Male

DRUGS (7)
  1. JALYN [Suspect]
     Indication: BENIGN PROSTATIC HYPERPLASIA
     Dosage: 1CAP PER DAY
     Route: 048
     Dates: end: 20120816
  2. GEMFIBROZIL [Concomitant]
  3. LOVASTATIN [Concomitant]
  4. METFORMIN [Concomitant]
  5. AMLODIPINE [Concomitant]
  6. LISINOPRIL [Concomitant]
  7. LEVOTHYROXINE SODIUM [Concomitant]

REACTIONS (11)
  - AGITATION [None]
  - DRY SKIN [None]
  - CHEST PAIN [None]
  - HYPOTENSION [None]
  - CONFUSIONAL STATE [None]
  - CONSTIPATION [None]
  - PYREXIA [None]
  - NERVOUSNESS [None]
  - HYPERHIDROSIS [None]
  - ANXIETY [None]
  - FEELING HOT [None]
